FAERS Safety Report 7604303-9 (Version None)
Quarter: 2011Q3

REPORT INFORMATION
  Report Type: 
  Country: None (occurrence: None)
  Receive Date: 20110712
  Receipt Date: 20110628
  Transmission Date: 20111222
  Serious: Yes (Other)
  Sender: FDA-Public Use
  Company Number: PHHY2011US57667

PATIENT
  Age: 12 Year
  Sex: Female

DRUGS (4)
  1. IBUPROFEN (ADVIL) [Concomitant]
  2. TRILEPTAL [Suspect]
     Indication: MIGRAINE
     Dosage: 150 MG, 4 TIME DAY
     Dates: start: 20101101
  3. PROZAC [Suspect]
  4. TRILEPTAL [Suspect]
     Dosage: 150 MG, BID
     Dates: start: 20110329

REACTIONS (5)
  - WEIGHT INCREASED [None]
  - PSYCHOTIC DISORDER [None]
  - ANXIETY [None]
  - CRYING [None]
  - TREMOR [None]
